FAERS Safety Report 6211193-8 (Version None)
Quarter: 2009Q2

REPORT INFORMATION
  Report Type: 
  Country: None (occurrence: None)
  Receive Date: 20090602
  Receipt Date: 20090526
  Transmission Date: 20091009
  Serious: Yes (Hospitalization, Other)
  Sender: FDA-Public Use
  Company Number: US-BAYER-200837593NA

PATIENT
  Age: 67 Year
  Sex: Male
  Weight: 84 kg

DRUGS (11)
  1. NEXAVAR [Suspect]
     Indication: RENAL CELL CARCINOMA
     Route: 048
     Dates: start: 20081001, end: 20081001
  2. NEXAVAR [Suspect]
     Dosage: UNIT DOSE: 200 MG
     Route: 048
     Dates: start: 20081104, end: 20081101
  3. PREVACID [Concomitant]
  4. RAMIPRIL [Concomitant]
  5. METFORMIN HYDROCHLORIDE [Concomitant]
  6. SIMVASTATIN [Concomitant]
  7. MULTI-VITAMIN [Concomitant]
  8. GLIPIZIDE [Concomitant]
  9. VITRON C [Concomitant]
  10. ASPIRIN [Concomitant]
  11. STOOL SOFTNER [Concomitant]

REACTIONS (5)
  - AMNESIA [None]
  - CONFUSIONAL STATE [None]
  - DIZZINESS [None]
  - INCOHERENT [None]
  - VOMITING [None]
